FAERS Safety Report 14009905 (Version 1)
Quarter: 2017Q3

REPORT INFORMATION
  Report Type: Spontaneous
  Country: DE (occurrence: DE)
  Receive Date: 20170925
  Receipt Date: 20170925
  Transmission Date: 20171128
  Serious: Yes (Life-Threatening, Hospitalization, Disabling, Other)
  Sender: FDA-Public Use
  Company Number: DE-009507513-1709DEU009594

PATIENT
  Age: 70 Year
  Sex: Male
  Weight: 67 kg

DRUGS (3)
  1. IMBRUVICA [Interacting]
     Active Substance: IBRUTINIB
     Indication: MANTLE CELL LYMPHOMA
     Dosage: 560 MG, QD
     Route: 048
     Dates: start: 20170705, end: 20170804
  2. IMBRUVICA [Interacting]
     Active Substance: IBRUTINIB
     Dosage: UNK
     Route: 048
     Dates: start: 20170816
  3. SIMVASTATIN. [Suspect]
     Active Substance: SIMVASTATIN
     Dosage: UNK
     Route: 048
     Dates: end: 20170804

REACTIONS (5)
  - Renal impairment [Recovered/Resolved]
  - Pain [Recovered/Resolved]
  - Acute kidney injury [Recovered/Resolved]
  - General physical health deterioration [Recovered/Resolved]
  - Rhabdomyolysis [Recovered/Resolved]

NARRATIVE: CASE EVENT DATE: 20170804
